FAERS Safety Report 9473300 (Version 1)
Quarter: 2013Q3

REPORT INFORMATION
  Report Type: Spontaneous
  Country: US (occurrence: US)
  Receive Date: 20130823
  Receipt Date: 20130823
  Transmission Date: 20140515
  Serious: No
  Sender: FDA-Public Use
  Company Number: US-BRISTOL-MYERS SQUIBB COMPANY-18862300

PATIENT
  Age: 64 Year
  Sex: Female
  Weight: 57.59 kg

DRUGS (9)
  1. SPRYCEL [Suspect]
     Indication: CHRONIC MYELOID LEUKAEMIA
     Route: 048
     Dates: start: 20130406
  2. BIOTIN [Concomitant]
  3. CALCIUM [Concomitant]
  4. UBIDECARENONE [Concomitant]
  5. FISH OIL [Concomitant]
  6. LEVOXYL [Concomitant]
  7. LOVASTATIN [Concomitant]
  8. METFORMIN [Concomitant]
  9. BONIVA [Concomitant]

REACTIONS (1)
  - Nausea [Recovering/Resolving]
